FAERS Safety Report 9586277 (Version 3)
Quarter: 2013Q4

REPORT INFORMATION
  Report Type: Spontaneous
  Country: GB (occurrence: GB)
  Receive Date: 20131003
  Receipt Date: 20131023
  Transmission Date: 20140711
  Serious: Yes (Hospitalization, Other)
  Sender: FDA-Public Use
  Company Number: PHFR2013GB005533

PATIENT
  Age: 70 Year
  Sex: Male

DRUGS (4)
  1. CLOZARIL [Suspect]
     Indication: SCHIZOPHRENIA
     Dosage: 650 MG, DAILY
     Route: 048
     Dates: start: 20010701
  2. TRIHEXYPHENIDYL [Concomitant]
     Dosage: 4 MG, UNK
     Route: 048
  3. ALLOPURINOL [Concomitant]
     Indication: ADVERSE DRUG REACTION
     Dosage: 300 MG, UNK
     Route: 048
  4. OLANZAPINE [Concomitant]
     Dosage: 20 MG, DAILY

REACTIONS (5)
  - Lymphoma [Not Recovered/Not Resolved]
  - Intestinal obstruction [Unknown]
  - White blood cell count increased [Not Recovered/Not Resolved]
  - Neutrophil count increased [Not Recovered/Not Resolved]
  - Platelet count increased [Unknown]
